FAERS Safety Report 5392251-7 (Version None)
Quarter: 2007Q3

REPORT INFORMATION
  Report Type: 
  Country: None (occurrence: None)
  Receive Date: 20070720
  Receipt Date: 20070717
  Transmission Date: 20080115
  Serious: Yes (Hospitalization)
  Sender: FDA-Public Use
  Company Number: HQWYE122818JUL07

PATIENT
  Sex: Male
  Weight: 84.9 kg

DRUGS (7)
  1. HCV-796 [Suspect]
     Indication: HEPATITIS C
     Dosage: 1000 MG PER DAY
     Route: 048
     Dates: start: 20070510, end: 20070714
  2. ZOLOFT [Concomitant]
     Indication: DEPRESSION
     Route: 048
     Dates: start: 20020101
  3. PEGINTERFERON ALFA-2B [Suspect]
     Indication: HEPATITIS C
     Route: 058
     Dates: start: 20070510, end: 20070714
  4. IBUPROFEN [Concomitant]
     Indication: ARTHRALGIA
     Dosage: 800 MG EVERY 1 PRN
     Route: 048
     Dates: start: 20020101
  5. RIBAVIRIN [Suspect]
     Indication: HEPATITIS C
     Dosage: 1200 MG PER DAY
     Route: 048
     Dates: start: 20070510, end: 20070714
  6. ALLOPURINOL [Concomitant]
     Indication: GOUT
     Route: 048
     Dates: start: 20020101
  7. WELLBUTRIN [Concomitant]
     Indication: DEPRESSION
     Route: 048
     Dates: start: 20020101

REACTIONS (1)
  - ACUTE PSYCHOSIS [None]
